FAERS Safety Report 6242183-7 (Version None)
Quarter: 2009Q2

REPORT INFORMATION
  Report Type: 
  Country: None (occurrence: None)
  Receive Date: 20090622
  Receipt Date: 20090622
  Transmission Date: 20091009
  Serious: Yes (Hospitalization, Other)
  Sender: FDA-Public Use
  Company Number: None

PATIENT
  Age: 53 Year
  Sex: Female
  Weight: 117.9352 kg

DRUGS (1)
  1. HUMULIN R [Suspect]
     Indication: DIABETES MELLITUS
     Dosage: 10 ML. 3X A DAY SQ
     Dates: start: 20090402, end: 20090615

REACTIONS (6)
  - BLOOD GLUCOSE DECREASED [None]
  - FEAR [None]
  - INCORRECT DOSE ADMINISTERED [None]
  - MEDICATION ERROR [None]
  - TREATMENT NONCOMPLIANCE [None]
  - WRONG DRUG ADMINISTERED [None]
